FAERS Safety Report 18112870 (Version 3)
Quarter: 2021Q2

REPORT INFORMATION
  Report Type: Spontaneous
  Country: US (occurrence: US)
  Receive Date: 20200805
  Receipt Date: 20210624
  Transmission Date: 20210717
  Serious: Yes (Other)
  Sender: FDA-Public Use
  Company Number: US-GILEAD-2020-0486808

PATIENT
  Age: 75 Year
  Sex: Female
  Weight: 118 kg

DRUGS (26)
  1. ATRIPLA [Suspect]
     Active Substance: EFAVIRENZ\EMTRICITABINE\TENOFOVIR DISOPROXIL FUMARATE
     Dosage: UNK
     Route: 065
     Dates: start: 20090710, end: 20111125
  2. ASPIRIN [ACETYLSALICYLIC ACID] [Concomitant]
     Active Substance: ASPIRIN
     Dosage: UNK
  3. OMEPRAZOLE. [Concomitant]
     Active Substance: OMEPRAZOLE
  4. TRUVADA [Suspect]
     Active Substance: EMTRICITABINE\TENOFOVIR DISOPROXIL FUMARATE
     Indication: HIV INFECTION
     Dosage: UNK
     Route: 048
     Dates: start: 20111130, end: 20120824
  5. TIVICAY [Concomitant]
     Active Substance: DOLUTEGRAVIR SODIUM
     Dosage: UNK
  6. LASIX [Concomitant]
     Active Substance: FUROSEMIDE
  7. TRUVADA [Suspect]
     Active Substance: EMTRICITABINE\TENOFOVIR DISOPROXIL FUMARATE
     Dosage: UNK
     Route: 065
     Dates: start: 20111130, end: 20120724
  8. ATRIPLA [Suspect]
     Active Substance: EFAVIRENZ\EMTRICITABINE\TENOFOVIR DISOPROXIL FUMARATE
     Dosage: UNK
     Route: 065
     Dates: start: 20090622, end: 20111025
  9. RENVELA [Concomitant]
     Active Substance: SEVELAMER CARBONATE
  10. VITAMIN D NOS [Concomitant]
     Active Substance: VITAMIN D NOS
     Dosage: UNK
     Dates: start: 20160315
  11. ACETAMINOPHEN. [Concomitant]
     Active Substance: ACETAMINOPHEN
     Dosage: UNK
  12. ZIAGEN [Concomitant]
     Active Substance: ABACAVIR SULFATE
     Dosage: UNK
  13. ATRIPLA [Suspect]
     Active Substance: EFAVIRENZ\EMTRICITABINE\TENOFOVIR DISOPROXIL FUMARATE
     Indication: HIV INFECTION
     Dosage: UNK
     Route: 048
     Dates: start: 20090710, end: 20111129
  14. TYLENOL [Concomitant]
     Active Substance: ACETAMINOPHEN
     Dosage: UNK
  15. AMOXICILLIN. [Concomitant]
     Active Substance: AMOXICILLIN
  16. BACTRIM [Concomitant]
     Active Substance: SULFAMETHOXAZOLE\TRIMETHOPRIM
  17. HEPARIN [Concomitant]
     Active Substance: HEPARIN SODIUM
  18. PRAVASTATIN. [Concomitant]
     Active Substance: PRAVASTATIN
     Dosage: UNK
     Dates: start: 20090630
  19. EPIVIR [Concomitant]
     Active Substance: LAMIVUDINE
     Dosage: UNK
     Dates: start: 2013
  20. FAMOTIDINE. [Concomitant]
     Active Substance: FAMOTIDINE
  21. CLARITINE [Concomitant]
     Active Substance: LORATADINE
     Dosage: UNK
  22. KLOR?CON [Concomitant]
     Active Substance: POTASSIUM CHLORIDE
     Dosage: UNK
     Dates: start: 20110720
  23. PREDNISONE. [Concomitant]
     Active Substance: PREDNISONE
     Dosage: UNK
     Dates: start: 20090506
  24. SUSTIVA [Concomitant]
     Active Substance: EFAVIRENZ
     Dosage: UNK
     Dates: start: 2013
  25. LANSOPRAZOLE. [Concomitant]
     Active Substance: LANSOPRAZOLE
  26. WARFARIN [Concomitant]
     Active Substance: WARFARIN

REACTIONS (18)
  - Osteoporosis [Not Recovered/Not Resolved]
  - Acute kidney injury [Unknown]
  - Blood creatinine increased [Unknown]
  - Emotional distress [Not Recovered/Not Resolved]
  - Anxiety [Not Recovered/Not Resolved]
  - Wrist fracture [Not Recovered/Not Resolved]
  - Tooth loss [Unknown]
  - Bone density decreased [Unknown]
  - Pain [Not Recovered/Not Resolved]
  - Chronic kidney disease [Not Recovered/Not Resolved]
  - Ankle fracture [Not Recovered/Not Resolved]
  - Foot fracture [Not Recovered/Not Resolved]
  - End stage renal disease [Not Recovered/Not Resolved]
  - Multiple fractures [Unknown]
  - Chronic kidney disease [Unknown]
  - Osteopenia [Not Recovered/Not Resolved]
  - Radius fracture [Unknown]
  - Depression [Not Recovered/Not Resolved]

NARRATIVE: CASE EVENT DATE: 20130912
